FAERS Safety Report 24763000 (Version 1)
Quarter: 2024Q4

REPORT INFORMATION
  Report Type: Spontaneous
  Country: US (occurrence: US)
  Receive Date: 20241222
  Receipt Date: 20241222
  Transmission Date: 20250114
  Serious: Yes (Death, Life-Threatening, Other)
  Sender: AUROBINDO
  Company Number: US-MLMSERVICE-20241202-PI277711-00218-1

PATIENT
  Age: 12 Year
  Sex: Male

DRUGS (2)
  1. METHOTREXATE [Suspect]
     Active Substance: METHOTREXATE
     Indication: B-cell type acute leukaemia
     Dosage: HIGH DOSE
     Route: 042
  2. METHOTREXATE [Suspect]
     Active Substance: METHOTREXATE
     Dosage: HIGH DOSE
     Route: 037

REACTIONS (6)
  - Acute kidney injury [Fatal]
  - Acute hepatic failure [Fatal]
  - Septic shock [Fatal]
  - Hepatorenal syndrome [Fatal]
  - Generalised oedema [Fatal]
  - Toxicity to various agents [Fatal]
